FAERS Safety Report 6541998-5 (Version None)
Quarter: 2010Q1

REPORT INFORMATION
  Report Type: 
  Country: None (occurrence: None)
  Receive Date: 20100119
  Receipt Date: 20100112
  Transmission Date: 20100710
  Serious: Yes (Hospitalization)
  Sender: FDA-Public Use
  Company Number: US-ROCHE-671861

PATIENT
  Sex: Female
  Weight: 62.3 kg

DRUGS (6)
  1. BEVACIZUMAB [Suspect]
     Indication: BREAST CANCER
     Dosage: 10 MG/KG, Q2W
     Route: 065
  2. DOXORUBICIN HCL [Suspect]
     Indication: BREAST CANCER
     Dosage: 60 MG/M2, UNK
     Route: 065
  3. DOXORUBICIN HCL [Suspect]
     Route: 065
     Dates: start: 20091125
  4. CYCLOPHOSPHAMIDE [Suspect]
     Indication: BREAST CANCER
     Dosage: 600 MG/M2, UNK
     Route: 065
  5. CYCLOPHOSPHAMIDE [Suspect]
     Route: 065
     Dates: start: 20091125
  6. TAXOL [Suspect]
     Indication: BREAST CANCER
     Route: 065
     Dates: start: 20091223

REACTIONS (4)
  - FEBRILE NEUTROPENIA [None]
  - HERPES ZOSTER [None]
  - NEUTROPENIA [None]
  - PYREXIA [None]
